FAERS Safety Report 12641156 (Version 1)
Quarter: 2020Q3

REPORT INFORMATION
  Report Type: Report from Study
  Country: RU (occurrence: RU)
  Receive Date: 20160810
  Receipt Date: 20160810
  Transmission Date: 20201105
  Serious: Yes (Life-Threatening, Hospitalization)
  Sender: FDA-Public Use
  Company Number: RU-JNJFOC-20160506458

PATIENT
  Age: 50 Year
  Sex: Male
  Weight: 112.4 kg

DRUGS (11)
  1. FOLIC ACID. [Concomitant]
     Active Substance: FOLIC ACID
     Indication: COLITIS ULCERATIVE
     Route: 048
     Dates: start: 201504
  2. PLACEBO [Suspect]
     Active Substance: UNSPECIFIED INGREDIENT
     Indication: COLITIS ULCERATIVE
     Dosage: Q 4 WEEKS FOLLOWED BY Q 8 WEEKS
     Route: 042
     Dates: start: 20160111, end: 20160310
  3. SULFASALAZINE DELAYED?RELEASE [Concomitant]
     Active Substance: SULFASALAZINE
     Indication: COLITIS ULCERATIVE
     Route: 048
     Dates: start: 201504
  4. BUDENOFALK [Concomitant]
     Active Substance: BUDESONIDE
     Indication: COLITIS ULCERATIVE
     Route: 065
     Dates: start: 20160310
  5. BLINDED; USTEKINUMA [Suspect]
     Active Substance: USTEKINUMAB
     Indication: COLITIS ULCERATIVE
     Dosage: Q 4 WEEKS FOLLOWED BY Q 8 WEEKS
     Route: 042
     Dates: start: 20160111, end: 20160310
  6. AZATHIOPRINUM [Concomitant]
     Active Substance: AZATHIOPRINE
     Indication: COLITIS ULCERATIVE
     Route: 048
     Dates: start: 201504
  7. OMEPRAZOLUM [Concomitant]
     Indication: COLITIS ULCERATIVE
     Route: 048
     Dates: start: 201504
  8. TRIGRIM [Concomitant]
     Route: 048
     Dates: start: 20160202
  9. CONCOR [Concomitant]
     Active Substance: BISOPROLOL FUMARATE
     Indication: HYPERTENSION
     Route: 048
     Dates: start: 20160202
  10. ASPARCAM [Concomitant]
     Route: 048
     Dates: start: 20160202
  11. BLINDED; USTEKINUMA [Suspect]
     Active Substance: USTEKINUMAB
     Route: 042

REACTIONS (2)
  - Confusional state [Recovered/Resolved with Sequelae]
  - Neurological decompensation [Recovered/Resolved with Sequelae]

NARRATIVE: CASE EVENT DATE: 20160504
